FAERS Safety Report 9127411 (Version 1)
Quarter: 2013Q1

REPORT INFORMATION
  Report Type: Spontaneous
  Country: US (occurrence: US)
  Receive Date: 20130122
  Receipt Date: 20130122
  Transmission Date: 20140127
  Serious: Yes (Death)
  Sender: FDA-Public Use
  Company Number: PHEH2013US001842

PATIENT
  Age: 78 Year
  Sex: Male

DRUGS (1)
  1. EXJADE [Suspect]
     Indication: ILL-DEFINED DISORDER
     Dosage: 125 MG, UNK
     Route: 048
     Dates: start: 20120926

REACTIONS (1)
  - Death [Fatal]
